FAERS Safety Report 8093414-2 (Version None)
Quarter: 2012Q1

REPORT INFORMATION
  Report Type: 
  Country: None (occurrence: None)
  Receive Date: 20120131
  Receipt Date: 20120124
  Transmission Date: 20120608
  Serious: Yes (Hospitalization)
  Sender: FDA-Public Use
  Company Number: JP-SANOFI-AVENTIS-2012SA005578

PATIENT
  Age: 65 Year
  Sex: Male
  Weight: 71.2 kg

DRUGS (8)
  1. CLARITHROMYCIN [Suspect]
     Route: 048
     Dates: start: 20111122
  2. AMLODIPINE [Concomitant]
  3. ALLEGRA [Suspect]
     Route: 048
     Dates: start: 20111115
  4. LIVALO [Concomitant]
  5. EMPYNASE [Suspect]
     Route: 048
     Dates: start: 20111115
  6. AMOXICILLIN [Concomitant]
     Dates: start: 20111115, end: 20111122
  7. MUCODYNE [Suspect]
     Route: 048
     Dates: start: 20111115
  8. OLMESARTAN MEDOXOMIL [Concomitant]

REACTIONS (4)
  - ORAL PAIN [None]
  - STEVENS-JOHNSON SYNDROME [None]
  - ERYTHEMA [None]
  - OCULAR HYPERAEMIA [None]
